FAERS Safety Report 24155760 (Version 2)
Quarter: 2024Q3

REPORT INFORMATION
  Report Type: Spontaneous
  Country: SG (occurrence: SG)
  Receive Date: 20240731
  Receipt Date: 20240914
  Transmission Date: 20241016
  Serious: Yes (Other)
  Sender: ROCHE
  Company Number: SG-ROCHE-10000034103

PATIENT
  Age: 66 Year
  Sex: Male

DRUGS (1)
  1. TECENTRIQ [Suspect]
     Active Substance: ATEZOLIZUMAB
     Indication: Non-small cell lung cancer
     Route: 065

REACTIONS (5)
  - Nerve injury [Unknown]
  - Hypoaesthesia [Unknown]
  - Neoplasm malignant [Unknown]
  - Hepatitis B [Unknown]
  - Pain in extremity [Unknown]
